FAERS Safety Report 24295024 (Version 1)
Quarter: 2024Q3

REPORT INFORMATION
  Report Type: Spontaneous
  Country: GB (occurrence: GB)
  Receive Date: 20240907
  Receipt Date: 20240907
  Transmission Date: 20241017
  Serious: Yes (Other)
  Sender: TEVA
  Company Number: GB-MHRA-TPP26437211C1817042YC1724857308251

PATIENT
  Age: 76 Year
  Sex: Female
  Weight: 69 kg

DRUGS (7)
  1. DOXAZOSIN [Suspect]
     Active Substance: DOXAZOSIN MESYLATE
     Indication: Ill-defined disorder
     Route: 065
     Dates: start: 20240805, end: 20240809
  2. LEVOTHYROXINE [Concomitant]
     Active Substance: LEVOTHYROXINE\LEVOTHYROXINE SODIUM
     Indication: Ill-defined disorder
     Dosage: TAKE ONE EACH MORNING, TPP YC - PLEASE RECLASSIFY
     Route: 065
     Dates: start: 20231219
  3. INDAPAMIDE [Concomitant]
     Active Substance: INDAPAMIDE
     Indication: Ill-defined disorder
     Dosage: TAKE ONE TABLET EVERY MORNING., TPP YC - PLEASE RECLASSIFY
     Route: 065
     Dates: start: 20240820, end: 20240820
  4. LERCANIDIPINE HYDROCHLORIDE [Concomitant]
     Active Substance: LERCANIDIPINE HYDROCHLORIDE
     Indication: Ill-defined disorder
     Dosage: TAKE ONE DAILY, TPP YC - PLEASE RECLASSIFY
     Route: 065
     Dates: start: 20240820
  5. NITROFURANTOIN [Concomitant]
     Active Substance: NITROFURANTOIN
     Indication: Ill-defined disorder
     Dosage: TPP YC - PLEASE RECLASSIFY
     Route: 065
     Dates: start: 20240610, end: 20240617
  6. ESTRIOL [Concomitant]
     Active Substance: ESTRIOL
     Indication: Ill-defined disorder
     Dosage: INSERT ONE APPLICATORFUL AT NIGHT FOR TWO WEEKS., TPP YC - PLEASE RECLASSIFY
     Route: 065
     Dates: start: 20240419
  7. ASPIRIN [Concomitant]
     Active Substance: ASPIRIN
     Indication: Ill-defined disorder
     Dosage: TAKE ONE TABLET ONCE A DAY., TPP YC - PLEASE RECLASSIFY
     Route: 065
     Dates: start: 20240820

REACTIONS (3)
  - Pharyngeal swelling [Recovered/Resolved]
  - Dyspnoea [Unknown]
  - Flushing [Unknown]

NARRATIVE: CASE EVENT DATE: 20240809
